FAERS Safety Report 6026438-7 (Version None)
Quarter: 2009Q1

REPORT INFORMATION
  Report Type: 
  Country: None (occurrence: None)
  Receive Date: 20090102
  Receipt Date: 20081211
  Transmission Date: 20090719
  Serious: Yes (Other)
  Sender: FDA-Public Use
  Company Number: PHHY2008JP31392

PATIENT

DRUGS (1)
  1. MIKELAN LA 2% (NVO) [Suspect]

REACTIONS (1)
  - ASTHMA [None]
